FAERS Safety Report 5050687-8 (Version None)
Quarter: 2006Q3

REPORT INFORMATION
  Report Type: 
  Country: None (occurrence: None)
  Receive Date: 20060710
  Receipt Date: 20060628
  Transmission Date: 20061208
  Serious: Yes (Hospitalization)
  Sender: FDA-Public Use
  Company Number: 2006081725

PATIENT
  Age: 25 Year
  Sex: Female

DRUGS (5)
  1. ALPRAZOLAM [Suspect]
     Dosage: ORAL
     Route: 048
  2. RIZE (CLOTIAZEPAM) [Suspect]
     Dosage: ORAL
     Route: 048
  3. AMITRIPTYLINE HCL [Suspect]
     Dosage: ORAL
     Route: 048
  4. PZC (PERPHENAZINE MALEATE) [Suspect]
     Dosage: ORAL
     Route: 048
  5. MEILAX (ETHYL LOFLAZEPATE) [Suspect]
     Dosage: ORAL
     Route: 048

REACTIONS (7)
  - CARDIOLIPIN ANTIBODY POSITIVE [None]
  - DRUG TOXICITY [None]
  - DYSPNOEA [None]
  - FIBRIN D DIMER INCREASED [None]
  - INTENTIONAL OVERDOSE [None]
  - PO2 DECREASED [None]
  - PULMONARY EMBOLISM [None]
